FAERS Safety Report 10100373 (Version 2)
Quarter: 2014Q2

REPORT INFORMATION
  Report Type: Report from Study
  Country: BR (occurrence: BR)
  Receive Date: 20140423
  Receipt Date: 20140624
  Transmission Date: 20141212
  Serious: Yes (Hospitalization, Other)
  Sender: FDA-Public Use
  Company Number: PHHY2014BR047536

PATIENT
  Sex: Female

DRUGS (4)
  1. DIOVAN [Suspect]
     Indication: HYPERTENSION
     Dosage: 1 TABLET (320 MG), DAILY
     Route: 048
  2. GLIMEPIRIDE SANDOZ [Suspect]
     Dosage: 4 MG, UNK
  3. SELOZOK [Concomitant]
     Indication: CARDIAC DISORDER
     Dosage: 2 TABLETS (50 MG), DAILY
     Route: 048
  4. ANLO [Concomitant]
     Indication: HYPERTENSION
     Dosage: 1 TABLET (5 MG), DAILY
     Route: 048

REACTIONS (5)
  - Hypoglycaemia [Recovered/Resolved]
  - Syncope [Recovered/Resolved]
  - Speech disorder [Recovered/Resolved]
  - Confusional state [Recovered/Resolved]
  - Drug ineffective [Unknown]
